FAERS Safety Report 25952457 (Version 3)
Quarter: 2025Q4

REPORT INFORMATION
  Report Type: Report from Study
  Country: US (occurrence: US)
  Receive Date: 20251023
  Receipt Date: 20251120
  Transmission Date: 20260117
  Serious: No
  Sender: MALLINCKRODT
  Company Number: US-MALLINCKRODT-MNK202506408

PATIENT
  Age: 69 Year
  Sex: Male

DRUGS (5)
  1. CORTICOTROPIN [Suspect]
     Active Substance: CORTICOTROPIN
     Indication: Ocular pemphigoid
     Dosage: 80 UNITS
     Route: 058
     Dates: start: 20250919
  2. WARFARIN [Concomitant]
     Active Substance: WARFARIN
     Dosage: UNKNOWN
  3. HUMAN IMMUNOGLOBULIN G [Concomitant]
     Active Substance: HUMAN IMMUNOGLOBULIN G
     Dosage: UNKNOWN
  4. PREDNISONE [Concomitant]
     Active Substance: PREDNISONE
     Dosage: UNKNOWN
  5. DULOXETINE [Concomitant]
     Active Substance: DULOXETINE
     Dosage: UNKNOWN

REACTIONS (4)
  - Taste disorder [Not Recovered/Not Resolved]
  - Dry throat [Unknown]
  - Asthenia [Unknown]
  - Fatigue [Unknown]

NARRATIVE: CASE EVENT DATE: 20250101
